FAERS Safety Report 21025574 (Version 1)
Quarter: 2022Q2

REPORT INFORMATION
  Report Type: Spontaneous
  Country: US (occurrence: US)
  Receive Date: 20220630
  Receipt Date: 20220630
  Transmission Date: 20220720
  Serious: Yes (Death, Other)
  Sender: FDA-Public Use
  Company Number: US-SA-SAC20220628001019

PATIENT
  Age: 36 Year
  Sex: Female

DRUGS (1)
  1. ZANTAC [Suspect]
     Active Substance: RANITIDINE HYDROCHLORIDE
     Indication: Dyspepsia
     Dosage: UNK UNK, QD
     Dates: start: 198601, end: 200812

REACTIONS (4)
  - Hepatic cancer stage IV [Fatal]
  - Ovarian cancer stage IV [Fatal]
  - Pancreatic carcinoma stage IV [Fatal]
  - Gallbladder cancer stage IV [Fatal]

NARRATIVE: CASE EVENT DATE: 19920101
